FAERS Safety Report 4450485-X (Version None)
Quarter: 2004Q3

REPORT INFORMATION
  Report Type: 
  Country: None (occurrence: None)
  Receive Date: 20040915
  Receipt Date: 20040913
  Transmission Date: 20050211
  Serious: Yes (Death)
  Sender: FDA-Public Use
  Company Number: 04-07-1085

PATIENT
  Age: 65 Year
  Sex: Female

DRUGS (1)
  1. CLOZAPINE [Suspect]
     Dosage: 37.5-75MG QD ORAL
     Route: 048
     Dates: start: 20021201, end: 20040601

REACTIONS (5)
  - BREAST CANCER [None]
  - COLON CANCER [None]
  - METASTASES TO ABDOMINAL CAVITY [None]
  - METASTASES TO BONE [None]
  - OVARIAN CANCER [None]
